FAERS Safety Report 10745726 (Version 1)
Quarter: 2015Q1

REPORT INFORMATION
  Report Type: Spontaneous
  Country: US (occurrence: None)
  Receive Date: 20150127
  Receipt Date: 20150127
  Transmission Date: 20150721
  Serious: Yes (Disabling)
  Sender: FDA-Public Use
  Company Number: None

PATIENT
  Age: 76 Year
  Sex: Female
  Weight: 71.22 kg

DRUGS (1)
  1. HYDROXYUREA 500 MG [Suspect]
     Active Substance: HYDROXYUREA
     Indication: POLYCYTHAEMIA VERA
     Dosage: 1, ONCE DAILY, TAKEN BY MOUTH
     Route: 048
     Dates: start: 20141210, end: 20150108

REACTIONS (7)
  - Influenza like illness [None]
  - Skin ulcer [None]
  - Skin disorder [None]
  - Activities of daily living impaired [None]
  - Musculoskeletal stiffness [None]
  - Fatigue [None]
  - Pain [None]

NARRATIVE: CASE EVENT DATE: 20150108
